FAERS Safety Report 4994944-X (Version None)
Quarter: 2006Q2

REPORT INFORMATION
  Report Type: 
  Country: None (occurrence: None)
  Receive Date: 20060503
  Receipt Date: 20060427
  Transmission Date: 20061013
  Serious: Yes (Hospitalization)
  Sender: FDA-Public Use
  Company Number: 200604454

PATIENT
  Age: 69 Year
  Sex: Female
  Weight: 108.8633 kg

DRUGS (6)
  1. RESTASIS [Suspect]
     Indication: DRY EYE
     Dosage: 2 DROP BID EYE
  2. SYNTHROID [Concomitant]
  3. LIPITOR [Concomitant]
  4. VASOTEC [Concomitant]
  5. LASIX [Concomitant]
  6. MOBIC [Concomitant]

REACTIONS (3)
  - CELLULITIS [None]
  - EYE INFECTION [None]
  - STAPHYLOCOCCAL INFECTION [None]
